FAERS Safety Report 13864058 (Version 4)
Quarter: 2017Q3

REPORT INFORMATION
  Report Type: Spontaneous
  Country: ES (occurrence: ES)
  Receive Date: 20170814
  Receipt Date: 20170907
  Transmission Date: 20171127
  Serious: Yes (Other)
  Sender: FDA-Public Use
  Company Number: ES-JNJFOC-20170807879

PATIENT
  Age: 57 Year
  Sex: Male

DRUGS (7)
  1. 6-MP [Concomitant]
     Active Substance: MERCAPTOPURINE
     Route: 065
  2. PANTOPRAZOLE [Concomitant]
     Active Substance: PANTOPRAZOLE
     Route: 065
  3. METRONIDAZOLE. [Concomitant]
     Active Substance: METRONIDAZOLE
     Route: 065
  4. ACFOL [Concomitant]
     Active Substance: FOLIC ACID
     Route: 065
  5. CLAVERSAL [Concomitant]
     Active Substance: MESALAMINE
     Route: 065
  6. INFLIXIMAB, RECOMBINANT [Suspect]
     Active Substance: INFLIXIMAB
     Indication: CROHN^S DISEASE
     Route: 042
     Dates: start: 20100618, end: 20110301
  7. DENVAR [Concomitant]
     Active Substance: CEFIXIME
     Route: 065

REACTIONS (2)
  - Therapeutic response decreased [Unknown]
  - Listeria sepsis [Recovered/Resolved]

NARRATIVE: CASE EVENT DATE: 20101005
